FAERS Safety Report 8361654-0 (Version None)
Quarter: 2012Q2

REPORT INFORMATION
  Report Type: 
  Country: None (occurrence: None)
  Receive Date: 20120515
  Receipt Date: 20120426
  Transmission Date: 20120825
  Serious: No
  Sender: FDA-Public Use
  Company Number: US-ASTRAZENECA-2012SE11122

PATIENT
  Age: 41 Year
  Sex: Male
  Weight: 129.7 kg

DRUGS (6)
  1. NEXIUM [Suspect]
     Route: 048
  2. LISINOPRIL [Concomitant]
  3. ACTOS [Concomitant]
  4. GLYB/METFORMIN [Concomitant]
  5. ATENOLOL [Concomitant]
  6. METFORMIN HCL [Concomitant]

REACTIONS (2)
  - HEAD INJURY [None]
  - DIABETES MELLITUS [None]
